FAERS Safety Report 8929881 (Version 1)
Quarter: 2012Q4

REPORT INFORMATION
  Report Type: 
  Country: US (occurrence: US)
  Receive Date: 20121128
  Receipt Date: 20121128
  Transmission Date: 20130627
  Serious: Yes (Death, Other)
  Sender: FDA-Public Use
  Company Number: US-ROCHE-576828

PATIENT

DRUGS (7)
  1. RITUXIMAB [Suspect]
     Indication: B-CELL LYMPHOMA
     Dosage: DAY 13 PRE-TRANSPLANTATION.
     Route: 065
  2. RITUXIMAB [Suspect]
     Dosage: DAY 6 PRE-, AND DAYS 1 AND 8 POST-TRANSPLANTATION.
     Route: 065
  3. FLUDARABINE [Suspect]
     Indication: B-CELL LYMPHOMA
     Dosage: DAYS 5 TO 3 PRE-TRANSPLANTATION.
     Route: 042
  4. CYCLOPHOSPHAMIDE [Suspect]
     Indication: B-CELL LYMPHOMA
     Dosage: DAYS 5 TO 3 PRE-TRANSPLANTATION.
     Route: 042
  5. IBRITUMOMAB TIUXETAN\YTTRIUM Y-90 [Suspect]
     Indication: B-CELL LYMPHOMA
     Route: 065
  6. TACROLIMUS [Concomitant]
     Indication: PROPHYLAXIS AGAINST GRAFT VERSUS HOST DISEASE
     Dosage: DAYS 1, 3 AND 6 POST-TRANSPLANTATION.
     Route: 042
  7. METHOTREXATE [Concomitant]
     Indication: PROPHYLAXIS AGAINST GRAFT VERSUS HOST DISEASE
     Dosage: DAYS 1, 3 AND 6 POST-TRANSPLANTATION.
     Route: 042

REACTIONS (15)
  - Death [Fatal]
  - Infection [Fatal]
  - Hepatotoxicity [Unknown]
  - Headache [Unknown]
  - Subdural haematoma [Unknown]
  - Hypertension [Unknown]
  - Deep vein thrombosis [Unknown]
  - Chest pain [Unknown]
  - Bone pain [Unknown]
  - Diarrhoea [Unknown]
  - Pulmonary toxicity [Unknown]
  - Graft versus host disease [Unknown]
  - Bacterial infection [Fatal]
  - Fungal infection [Fatal]
  - Viral infection [Fatal]
